FAERS Safety Report 4915956-8 (Version None)
Quarter: 2006Q1

REPORT INFORMATION
  Report Type: 
  Country: None (occurrence: None)
  Receive Date: 20060214
  Receipt Date: 20060130
  Transmission Date: 20060701
  Serious: Yes (Death, Other)
  Sender: FDA-Public Use
  Company Number: US200601005317

PATIENT
  Age: 27 Year
  Sex: Female

DRUGS (1)
  1. STRATTERA [Suspect]
     Dates: start: 20060101

REACTIONS (3)
  - BLOOD PRESSURE DECREASED [None]
  - PYREXIA [None]
  - TACHYCARDIA [None]
